FAERS Safety Report 18263956 (Version 3)
Quarter: 2021Q3

REPORT INFORMATION
  Report Type: Spontaneous
  Country: US (occurrence: US)
  Receive Date: 20200914
  Receipt Date: 20210901
  Transmission Date: 20211014
  Serious: No
  Sender: FDA-Public Use
  Company Number: US-PFIZER INC-2020223972

PATIENT
  Age: 72 Year
  Sex: Female

DRUGS (1)
  1. IBRANCE [Suspect]
     Active Substance: PALBOCICLIB
     Indication: BONE CANCER
     Dosage: 75 MG, DAILY
     Route: 048

REACTIONS (6)
  - Coordination abnormal [Unknown]
  - Cerebral disorder [Unknown]
  - Confusional state [Unknown]
  - Neoplasm progression [Unknown]
  - Malaise [Unknown]
  - Drug intolerance [Unknown]
